FAERS Safety Report 6518655-4 (Version None)
Quarter: 2009Q4

REPORT INFORMATION
  Report Type: 
  Country: None (occurrence: None)
  Receive Date: 20091228
  Receipt Date: 20091221
  Transmission Date: 20100525
  Serious: Yes (Other)
  Sender: FDA-Public Use
  Company Number: US-BAYER-200943374NA

PATIENT
  Sex: Female

DRUGS (1)
  1. MIRENA [Suspect]
     Indication: DRUG USE FOR UNKNOWN INDICATION
     Dosage: CONTINUOUS
     Route: 015
     Dates: start: 20090101

REACTIONS (6)
  - COLITIS [None]
  - CONVULSION [None]
  - CYST [None]
  - MIGRAINE [None]
  - UTERINE CERVICAL PAIN [None]
  - VERTIGO [None]
